FAERS Safety Report 9163559 (Version 2)
Quarter: 2013Q2

REPORT INFORMATION
  Report Type: Spontaneous
  Country: IT (occurrence: IT)
  Receive Date: 20130314
  Receipt Date: 20130415
  Transmission Date: 20140414
  Serious: Yes (Hospitalization)
  Sender: FDA-Public Use
  Company Number: IT-ROCHE-1201621

PATIENT
  Age: 32 Year
  Sex: Female

DRUGS (1)
  1. MABTHERA [Suspect]
     Indication: NEUROMYELITIS OPTICA
     Route: 042
     Dates: start: 20130220, end: 20130220

REACTIONS (2)
  - Hyperpyrexia [Recovering/Resolving]
  - Rash papular [Recovering/Resolving]
